FAERS Safety Report 7295552-0 (Version None)
Quarter: 2011Q1

REPORT INFORMATION
  Report Type: 
  Country: None (occurrence: None)
  Receive Date: 20110216
  Receipt Date: 20110207
  Transmission Date: 20110831
  Serious: Yes (Other)
  Sender: FDA-Public Use
  Company Number: CA-JNJFOC-20110202771

PATIENT
  Sex: Male
  Weight: 77 kg

DRUGS (2)
  1. REMICADE [Suspect]
     Dosage: 2 INFUSIONS ON UNSPECIFIED DATES
     Route: 042
  2. REMICADE [Suspect]
     Indication: COLITIS ULCERATIVE
     Route: 042

REACTIONS (9)
  - CONDITION AGGRAVATED [None]
  - HAEMOGLOBIN DECREASED [None]
  - FLUSHING [None]
  - WEIGHT DECREASED [None]
  - URTICARIA [None]
  - NAUSEA [None]
  - PALLOR [None]
  - INFUSION RELATED REACTION [None]
  - HYPERHIDROSIS [None]
